FAERS Safety Report 9268426 (Version 1)
Quarter: 2013Q2

REPORT INFORMATION
  Report Type: Spontaneous
  Country: KR (occurrence: KR)
  Receive Date: 20130502
  Receipt Date: 20130502
  Transmission Date: 20140414
  Serious: Yes (Hospitalization)
  Sender: FDA-Public Use
  Company Number: KR-BAXTER-2013BAX015862

PATIENT
  Age: 56 Year
  Sex: Female

DRUGS (4)
  1. DIANEAL PD-2 1.5 [Suspect]
     Indication: RENAL FAILURE CHRONIC
     Route: 033
     Dates: start: 20120911, end: 20130423
  2. DIANEAL PD-2 1.5 [Suspect]
     Indication: PERITONEAL DIALYSIS
  3. DIANEAL PD-2 4.25% [Suspect]
     Indication: RENAL FAILURE CHRONIC
     Route: 033
     Dates: start: 20120911, end: 20130423
  4. DIANEAL PD-2 4.25% [Suspect]
     Indication: PERITONEAL DIALYSIS

REACTIONS (1)
  - Chest pain [Not Recovered/Not Resolved]
